FAERS Safety Report 10299482 (Version 2)
Quarter: 2014Q3

REPORT INFORMATION
  Report Type: Report from Study
  Country: GB (occurrence: GB)
  Receive Date: 20140711
  Receipt Date: 20140729
  Transmission Date: 20150326
  Serious: Yes (Hospitalization)
  Sender: FDA-Public Use
  Company Number: GB-GLAXOSMITHKLINE-B1012638A

PATIENT
  Age: 80 Year
  Sex: Male
  Weight: 87.8 kg

DRUGS (23)
  1. BENDAMUSTINE [Suspect]
     Active Substance: BENDAMUSTINE
     Indication: CHRONIC LYMPHOCYTIC LEUKAEMIA
     Route: 042
     Dates: start: 20140626
  2. CHLORPHENIRAMINE [Concomitant]
     Active Substance: CHLORPHENIRAMINE
     Indication: CHRONIC LYMPHOCYTIC LEUKAEMIA
     Route: 048
     Dates: start: 20140626
  3. ATORVASTATIN [Concomitant]
     Active Substance: ATORVASTATIN
     Indication: PROPHYLAXIS
     Dosage: 10MG PER DAY
     Route: 048
     Dates: start: 20131115
  4. DEXAMETHASONE. [Concomitant]
     Active Substance: DEXAMETHASONE
     Indication: CHRONIC LYMPHOCYTIC LEUKAEMIA
     Route: 042
     Dates: start: 20140626
  5. AMLODIPINE [Concomitant]
     Active Substance: AMLODIPINE BESYLATE
     Indication: PROPHYLAXIS
     Dosage: 2.5MG PER DAY
     Route: 048
     Dates: start: 19940615
  6. BISOPROLOL [Concomitant]
     Active Substance: BISOPROLOL
     Indication: PROPHYLAXIS
     Dosage: 2.5MG PER DAY
     Route: 048
     Dates: start: 20030515
  7. FINASTERIDE. [Concomitant]
     Active Substance: FINASTERIDE
     Dosage: 5MG PER DAY
     Route: 048
     Dates: start: 20140617
  8. METOCLOPRAMIDE. [Concomitant]
     Active Substance: METOCLOPRAMIDE
     Indication: CHRONIC LYMPHOCYTIC LEUKAEMIA
     Route: 042
     Dates: start: 20140626
  9. ASPIRIN. [Concomitant]
     Active Substance: ASPIRIN
     Indication: PROPHYLAXIS
     Dosage: 75MG PER DAY
     Route: 048
     Dates: start: 20130915
  10. RAMIPRIL. [Concomitant]
     Active Substance: RAMIPRIL
     Indication: PROPHYLAXIS
     Dosage: 1.25MG PER DAY
     Route: 048
     Dates: start: 19990315
  11. QUININE SULPHATE [Concomitant]
     Active Substance: QUININE SULFATE
     Dosage: 200MG PER DAY
     Route: 048
     Dates: start: 20000415
  12. ADIPINE [Concomitant]
     Dosage: 10MG THREE TIMES PER DAY
     Route: 048
     Dates: start: 20140617
  13. PREDNISOLONE. [Concomitant]
     Active Substance: PREDNISOLONE
  14. ACICLOVIR [Concomitant]
     Active Substance: ACYCLOVIR
     Indication: CHRONIC LYMPHOCYTIC LEUKAEMIA
     Route: 048
     Dates: start: 20140626
  15. ALFACALCIDOL [Concomitant]
     Active Substance: ALFACALCIDOL
     Dosage: 250NG PER DAY
     Route: 048
     Dates: start: 20120615
  16. OFATUMUMAB [Suspect]
     Active Substance: OFATUMUMAB
     Indication: CHRONIC LYMPHOCYTIC LEUKAEMIA
     Route: 042
     Dates: start: 20140626
  17. ALLOPURINOL. [Concomitant]
     Active Substance: ALLOPURINOL
     Indication: CHRONIC LYMPHOCYTIC LEUKAEMIA
     Route: 048
     Dates: start: 20000215
  18. SODIUM BICARBONATE. [Concomitant]
     Active Substance: SODIUM BICARBONATE
     Indication: PROPHYLAXIS
     Dosage: 500MG PER DAY
     Route: 048
     Dates: start: 20121115
  19. NICORANDIL [Concomitant]
     Active Substance: NICORANDIL
     Indication: PROPHYLAXIS
     Dosage: 30MG PER DAY
     Route: 048
     Dates: start: 20140115
  20. ISOSORBIDE MONONITRATE. [Concomitant]
     Active Substance: ISOSORBIDE MONONITRATE
     Indication: PROPHYLAXIS
     Dosage: 20MG PER DAY
     Route: 048
     Dates: start: 20140117
  21. PARACETAMOL [Concomitant]
     Active Substance: ACETAMINOPHEN
     Indication: CHRONIC LYMPHOCYTIC LEUKAEMIA
     Route: 048
     Dates: start: 20140626
  22. METOCLOPRAMIDE. [Concomitant]
     Active Substance: METOCLOPRAMIDE
     Indication: CHRONIC LYMPHOCYTIC LEUKAEMIA
     Route: 042
     Dates: start: 20140626
  23. G-CSF [Concomitant]
     Active Substance: FILGRASTIM

REACTIONS (1)
  - Acute coronary syndrome [Recovered/Resolved with Sequelae]

NARRATIVE: CASE EVENT DATE: 20140626
